FAERS Safety Report 22636583 (Version 9)
Quarter: 2024Q4

REPORT INFORMATION
  Report Type: Spontaneous
  Country: US (occurrence: US)
  Receive Date: 20230623
  Receipt Date: 20241217
  Transmission Date: 20250115
  Serious: Yes (Other)
  Sender: PFIZER
  Company Number: US-PFIZER INC-202300227262

PATIENT
  Age: 61 Year
  Sex: Female
  Weight: 100.22 kg

DRUGS (6)
  1. BRAFTOVI [Suspect]
     Active Substance: ENCORAFENIB
     Indication: Malignant melanoma
     Dosage: 450 MG, 1X/DAY (6 CAPSULES 1 DAY)
     Dates: start: 20230609
  2. BRAFTOVI [Suspect]
     Active Substance: ENCORAFENIB
     Indication: Nodular melanoma
  3. MEKTOVI [Suspect]
     Active Substance: BINIMETINIB
     Indication: Malignant melanoma
     Dosage: 45 MG, 2X/DAY (3 TABLETS)
     Dates: start: 20230609
  4. MEKTOVI [Suspect]
     Active Substance: BINIMETINIB
     Indication: Nodular melanoma
  5. IBUPROFEN [Concomitant]
     Active Substance: IBUPROFEN
     Dosage: UNK
     Dates: start: 2021, end: 202307
  6. TYLENOL [Concomitant]
     Active Substance: ACETAMINOPHEN
     Dosage: UNK
     Dates: start: 2021, end: 202307

REACTIONS (18)
  - Haematochezia [Unknown]
  - Liver disorder [Not Recovered/Not Resolved]
  - Visual impairment [Not Recovered/Not Resolved]
  - Memory impairment [Not Recovered/Not Resolved]
  - Nodule [Recovering/Resolving]
  - Gait disturbance [Unknown]
  - Decreased appetite [Unknown]
  - Faeces discoloured [Recovered/Resolved]
  - Skin hyperplasia [Unknown]
  - Gastrointestinal pain [Unknown]
  - Brain fog [Unknown]
  - Frustration tolerance decreased [Unknown]
  - Aphasia [Unknown]
  - Rash pruritic [Unknown]
  - Asthenia [Not Recovered/Not Resolved]
  - Diarrhoea [Not Recovered/Not Resolved]
  - Nausea [Not Recovered/Not Resolved]
  - Fatigue [Not Recovered/Not Resolved]

NARRATIVE: CASE EVENT DATE: 20230101
